FAERS Safety Report 17237334 (Version 1)
Quarter: 2020Q1

REPORT INFORMATION
  Report Type: Spontaneous
  Country: US (occurrence: US)
  Receive Date: 20200106
  Receipt Date: 20200106
  Transmission Date: 20200409
  Serious: No
  Sender: FDA-Public Use
  Company Number: US-PFIZER INC-2020002238

PATIENT
  Age: 58 Year
  Sex: Female

DRUGS (1)
  1. XELJANZ [Suspect]
     Active Substance: TOFACITINIB CITRATE
     Dosage: 5 MG, 2X/DAY
     Dates: start: 20191214, end: 20191214

REACTIONS (8)
  - Oral discomfort [Unknown]
  - Hypoaesthesia oral [Unknown]
  - Swelling face [Unknown]
  - Hypoaesthesia [Unknown]
  - Tremor [Unknown]
  - Lip swelling [Unknown]
  - Throat irritation [Unknown]
  - Anxiety [Unknown]
